FAERS Safety Report 9175216 (Version 2)
Quarter: 2013Q2

REPORT INFORMATION
  Report Type: Spontaneous
  Country: GB (occurrence: GB)
  Receive Date: 20130320
  Receipt Date: 20130626
  Transmission Date: 20140414
  Serious: Yes (Hospitalization)
  Sender: FDA-Public Use
  Company Number: GB-BRISTOL-MYERS SQUIBB COMPANY-17480765

PATIENT
  Age: 41 Year
  Sex: Male

DRUGS (2)
  1. GLUCOPHAGE [Suspect]
     Indication: DIABETES MELLITUS
     Route: 048
     Dates: end: 20130314
  2. QUININE SULFATE [Concomitant]
     Indication: MUSCLE SPASMS

REACTIONS (2)
  - Cerebrovascular accident [Recovered/Resolved with Sequelae]
  - Lactic acidosis [Not Recovered/Not Resolved]
